FAERS Safety Report 9995673 (Version 1)
Quarter: 2014Q1

REPORT INFORMATION
  Report Type: Spontaneous
  Country: US (occurrence: US)
  Receive Date: 20140311
  Receipt Date: 20140311
  Transmission Date: 20141002
  Serious: No
  Sender: FDA-Public Use
  Company Number: US-GALDERMA-US13002634

PATIENT
  Sex: Female

DRUGS (3)
  1. TRI-LUMA CREAM (FLUOCINOLONE ACETONIDE 0.01%, HYDROQUINONE 4%, TRETINO [Suspect]
     Indication: SKIN HYPERPIGMENTATION
     Route: 061
     Dates: start: 20130506
  2. METOPROLOL SUCCINATE ER 50 [Concomitant]
     Route: 048
     Dates: start: 201204
  3. LISINOPRIL HCTZ 20-12.5 [Concomitant]
     Route: 048
     Dates: start: 201204

REACTIONS (3)
  - Drug ineffective for unapproved indication [Not Recovered/Not Resolved]
  - Off label use [Not Recovered/Not Resolved]
  - Inappropriate schedule of drug administration [Not Recovered/Not Resolved]
